FAERS Safety Report 19880221 (Version 2)
Quarter: 2021Q3

REPORT INFORMATION
  Report Type: Report from Study
  Country: None (occurrence: US)
  Receive Date: 20210925
  Receipt Date: 20210928
  Transmission Date: 20211014
  Serious: Yes (Hospitalization, Other)
  Sender: FDA-Public Use
  Company Number: US-ABBVIE-21K-163-4092356-00

PATIENT
  Age: 72 Year
  Sex: Male
  Weight: 52.21 kg

DRUGS (2)
  1. DUOPA [Suspect]
     Active Substance: CARBIDOPA\LEVODOPA
     Indication: PRODUCT USED FOR UNKNOWN INDICATION
     Dosage: 2 CASSETTES VIA PEG?J MD: 8ML, CONTINUOUS DOSE: 5.7ML, ED: 2ML, 4.63 MG/ML 20 MG/ML
     Route: 050
     Dates: start: 201508, end: 2021
  2. DUOPA [Suspect]
     Active Substance: CARBIDOPA\LEVODOPA

REACTIONS (11)
  - Endotracheal intubation [Unknown]
  - Cerebral haemorrhage [Unknown]
  - Brain operation [Unknown]
  - Parkinson^s disease [Not Recovered/Not Resolved]
  - Subdural haematoma [Unknown]
  - Fall [Unknown]
  - Intracranial pressure increased [Unknown]
  - Psychotic disorder [Unknown]
  - Pneumonia aspiration [Unknown]
  - Patient elopement [Unknown]
  - Seizure [Unknown]

NARRATIVE: CASE EVENT DATE: 202010
